FAERS Safety Report 5075830-6 (Version None)
Quarter: 2006Q3

REPORT INFORMATION
  Report Type: 
  Country: None (occurrence: None)
  Receive Date: 20060807
  Receipt Date: 20060727
  Transmission Date: 20061208
  Serious: Yes (Hospitalization, Other)
  Sender: FDA-Public Use
  Company Number: 2006092887

PATIENT
  Sex: Female
  Weight: 125.1928 kg

DRUGS (1)
  1. GEODON [Suspect]

REACTIONS (3)
  - AMNESIA [None]
  - CONDITION AGGRAVATED [None]
  - TREMOR [None]
